FAERS Safety Report 12862257 (Version 1)
Quarter: 2016Q4

REPORT INFORMATION
  Report Type: Spontaneous
  Country: US (occurrence: US)
  Receive Date: 20161019
  Receipt Date: 20161019
  Transmission Date: 20170207
  Serious: Yes (Other)
  Sender: FDA-Public Use
  Company Number: US-MALLINCKRODT-T201604925

PATIENT
  Age: 36 Year
  Sex: Male
  Weight: 40 kg

DRUGS (6)
  1. VALIUM [Concomitant]
     Active Substance: DIAZEPAM
  2. GABLOFEN [Suspect]
     Active Substance: BACLOFEN
     Dosage: 723.7 ?G, QD
     Route: 037
     Dates: start: 20160919, end: 20161002
  3. AUGMENTIN [Concomitant]
     Active Substance: AMOXICILLIN\CLAVULANATE POTASSIUM
  4. GABLOFEN [Suspect]
     Active Substance: BACLOFEN
     Dosage: 683 ?G, QD
     Route: 037
     Dates: start: 20161003
  5. GABLOFEN [Suspect]
     Active Substance: BACLOFEN
     Indication: PRODUCT USED FOR UNKNOWN INDICATION
     Dosage: 750 ?G, QD
     Route: 037
  6. LIORESAL [Concomitant]
     Active Substance: BACLOFEN
     Indication: PRODUCT USED FOR UNKNOWN INDICATION

REACTIONS (2)
  - Implant site haemorrhage [Unknown]
  - Accidental overdose [Not Recovered/Not Resolved]

NARRATIVE: CASE EVENT DATE: 20160915
